FAERS Safety Report 17777276 (Version 5)
Quarter: 2021Q4

REPORT INFORMATION
  Report Type: Report from Study
  Country: US (occurrence: US)
  Receive Date: 20200513
  Receipt Date: 20211101
  Transmission Date: 20220303
  Serious: Yes (Hospitalization, Other)
  Sender: FDA-Public Use
  Company Number: US-ACADIA PHARMACEUTICALS INC.-ACA-2019-014531

PATIENT
  Age: 82 Year
  Sex: Female

DRUGS (14)
  1. NUPLAZID [Suspect]
     Active Substance: PIMAVANSERIN TARTRATE
     Indication: Parkinson^s disease psychosis
     Dosage: 34 MILLIGRAM, QD
     Route: 048
     Dates: start: 201908
  2. NUPLAZID [Suspect]
     Active Substance: PIMAVANSERIN TARTRATE
     Indication: Hallucination
     Dosage: 34 MG, QD
     Route: 048
     Dates: start: 20191007
  3. NUPLAZID [Suspect]
     Active Substance: PIMAVANSERIN TARTRATE
     Indication: Delusion
  4. TYLENOL [Concomitant]
     Active Substance: ACETAMINOPHEN
     Dosage: 325 MILLIGRAM (650 MG EVERY 6 HRS PRN)
     Route: 048
  5. OMNICEF [Concomitant]
     Active Substance: CEFDINIR
     Dosage: 300MG, EVERY 12 HRS
     Route: 048
  6. FOLVITE [FOLIC ACID] [Concomitant]
     Dosage: 1 MILLIGRAM, QD
     Route: 048
  7. TOPROL XL [Concomitant]
     Active Substance: METOPROLOL SUCCINATE
     Dosage: 50 MG, EVERY 12 HRS
     Route: 048
  8. PRILOSEC [Concomitant]
     Active Substance: OMEPRAZOLE MAGNESIUM
     Dosage: 20 MILLIGRAM, QD
     Route: 048
  9. DELTASONE [Concomitant]
     Active Substance: PREDNISONE
     Dosage: 40 MILLIGRAM, QD WITH BREAKFAST
     Route: 048
     Dates: start: 20210910
  10. SPIRIVA [Concomitant]
     Active Substance: TIOTROPIUM BROMIDE MONOHYDRATE
     Dosage: 1 CAP INHALATION DAILY
  11. RISPERDAL [Concomitant]
     Active Substance: RISPERIDONE
     Dosage: 0.25 MG NIGHTLY PRN
     Route: 048
  12. ARIPIPRAZOLE [Concomitant]
     Active Substance: ARIPIPRAZOLE
     Dosage: 1MG/ML
  13. ASPIRIN [Concomitant]
     Active Substance: ASPIRIN
     Indication: Dyslipidaemia
  14. XARELTO [Concomitant]
     Active Substance: RIVAROXABAN

REACTIONS (7)
  - Acute respiratory failure [Recovered/Resolved]
  - Pneumonia viral [Unknown]
  - Dysphagia [Unknown]
  - Chronic obstructive pulmonary disease [Unknown]
  - Mental impairment [Recovered/Resolved]
  - Subcutaneous haematoma [Not Recovered/Not Resolved]
  - Drug ineffective [Unknown]

NARRATIVE: CASE EVENT DATE: 20201108
